FAERS Safety Report 4822423-9 (Version None)
Quarter: 2005Q4

REPORT INFORMATION
  Report Type: 
  Country: None (occurrence: None)
  Receive Date: 20051108
  Receipt Date: 20051019
  Transmission Date: 20060501
  Serious: Yes (Hospitalization)
  Sender: FDA-Public Use
  Company Number: JP-BRISTOL-MYERS SQUIBB COMPANY-13149281

PATIENT
  Age: 59 Year
  Sex: Female

DRUGS (11)
  1. PARAPLATIN [Suspect]
     Indication: OVARIAN CANCER
     Route: 041
     Dates: start: 20050907, end: 20050907
  2. TAXOL [Suspect]
     Route: 041
     Dates: start: 20050907, end: 20050907
  3. GASTER [Concomitant]
     Route: 041
     Dates: start: 20050907, end: 20050907
  4. DECADRON SRC [Concomitant]
     Route: 041
     Dates: start: 20050907, end: 20050907
  5. NASEA [Concomitant]
     Route: 041
     Dates: start: 20050907, end: 20050907
  6. RESTAMIN [Concomitant]
     Route: 048
     Dates: start: 20050907, end: 20050907
  7. WARFARIN [Concomitant]
     Route: 048
  8. BLOPRESS [Concomitant]
     Route: 048
  9. NORMONAL [Concomitant]
     Route: 048
  10. TENORMIN [Concomitant]
     Route: 048
  11. SIMVASTATIN [Concomitant]
     Route: 048

REACTIONS (2)
  - ANOREXIA [None]
  - INAPPROPRIATE ANTIDIURETIC HORMONE SECRETION [None]
